FAERS Safety Report 4434578-9 (Version None)
Quarter: 2004Q3

REPORT INFORMATION
  Report Type: 
  Country: None (occurrence: None)
  Receive Date: 20040721
  Receipt Date: 20031021
  Transmission Date: 20050211
  Serious: Yes (Hospitalization, Disabling, Other)
  Sender: FDA-Public Use
  Company Number: WAES 0310USA02338

PATIENT
  Age: 42 Year
  Sex: Female
  Weight: 68.4932 kg

DRUGS (11)
  1. VIOXX [Suspect]
     Dosage: 25 MG/HS/PO
     Route: 048
     Dates: start: 20030805, end: 20030815
  2. BENADRYL [Concomitant]
  3. CLARINEX [Concomitant]
  4. HYDRODIURIL [Concomitant]
  5. PREVACID [Concomitant]
  6. SINGULAIR [Concomitant]
  7. TAGAMET [Concomitant]
  8. ALLERGENIC EXTRACT [Concomitant]
  9. IMMUNOTHERAPY (UNSPECIFIED) [Concomitant]
  10. POTASSIUM CHLORIDE [Concomitant]
  11. ZINC (UNSPECIFIED) [Concomitant]

REACTIONS (3)
  - DYSPEPSIA [None]
  - HERPES SIMPLEX [None]
  - HYPERSENSITIVITY [None]
